FAERS Safety Report 13592681 (Version 3)
Quarter: 2017Q2

REPORT INFORMATION
  Report Type: Spontaneous
  Country: BR (occurrence: BR)
  Receive Date: 20170530
  Receipt Date: 20170629
  Transmission Date: 20170830
  Serious: Yes (Hospitalization, Other)
  Sender: FDA-Public Use
  Company Number: PHHY2016BR090073

PATIENT
  Sex: Male
  Weight: 58 kg

DRUGS (9)
  1. DIAMICRON [Concomitant]
     Active Substance: GLICLAZIDE
     Indication: PRODUCT USED FOR UNKNOWN INDICATION
     Dosage: 2 DF, UNK
     Route: 048
  2. EXELON PATCH [Suspect]
     Active Substance: RIVASTIGMINE
     Dosage: 9.5 MG (PATCH: 18 MG/ 10 CM2, 30 PATCHES), QD
     Route: 062
  3. EXELON PATCH [Suspect]
     Active Substance: RIVASTIGMINE
     Dosage: 9.5 MG (PATCH: 18 MG/ 10 CM2, 30 PATCHES), QD
     Route: 062
  4. EXELON PATCH [Suspect]
     Active Substance: RIVASTIGMINE
     Dosage: 4.6 MG (PATCH: 9 MG/ 5 CM2, 30 AND 15 PATCHES), QD
     Route: 062
  5. EXELON PATCH [Suspect]
     Active Substance: RIVASTIGMINE
     Dosage: 9.5 MG (PATCH: 18 MG/ 10CM2, 15 PATCHES), QD
     Route: 062
  6. EXELON PATCH [Suspect]
     Active Substance: RIVASTIGMINE
     Indication: DEMENTIA ALZHEIMER^S TYPE
     Dosage: 13.3 MG, QD (PATCH 15 (CM2))
     Route: 062
     Dates: start: 2002
  7. EXELON PATCH [Suspect]
     Active Substance: RIVASTIGMINE
     Dosage: 9.5 MG (PATCH: 18 MG/ 10 CM2, 30 PATCHES), QD
     Route: 062
     Dates: start: 2015
  8. EXELON PATCH [Suspect]
     Active Substance: RIVASTIGMINE
     Dosage: 2 DF (PATCH: 9 MG/ 5 CM2, 30 PATCHES), QD
     Route: 062
  9. EXELON PATCH [Suspect]
     Active Substance: RIVASTIGMINE
     Dosage: 13.3 MG, QD (PATCH: 27 MG / 15 CM2 )
     Route: 062

REACTIONS (9)
  - Blood sodium decreased [Unknown]
  - Weight decreased [Unknown]
  - Drug administration error [Unknown]
  - Abnormal behaviour [Unknown]
  - Hypertension [Unknown]
  - Product adhesion issue [Unknown]
  - Diabetes mellitus [Unknown]
  - Condition aggravated [Unknown]
  - Drug ineffective [Unknown]

NARRATIVE: CASE EVENT DATE: 2016
